FAERS Safety Report 25932326 (Version 1)
Quarter: 2025Q4

REPORT INFORMATION
  Report Type: Spontaneous
  Country: CN (occurrence: CN)
  Receive Date: 20251016
  Receipt Date: 20251016
  Transmission Date: 20260117
  Serious: Yes (Hospitalization, Other)
  Sender: SANDOZ
  Company Number: CN-SANDOZ-SDZ2025CN075822

PATIENT
  Age: 40 Year
  Sex: Male
  Weight: 40 kg

DRUGS (3)
  1. VORICONAZOLE [Suspect]
     Active Substance: VORICONAZOLE
     Indication: Pneumonia fungal
     Dosage: 200 ML, QD
     Route: 048
     Dates: start: 20250831, end: 20250903
  2. VORICONAZOLE [Suspect]
     Active Substance: VORICONAZOLE
     Indication: Antifungal treatment
  3. CEFTRIAXONE SODIUM [Concomitant]
     Active Substance: CEFTRIAXONE SODIUM
     Indication: Pneumonia fungal
     Dosage: 2 G, QD
     Route: 042
     Dates: start: 20250825, end: 20250903

REACTIONS (4)
  - Visual impairment [Recovering/Resolving]
  - Psychiatric symptom [Recovering/Resolving]
  - Abnormal behaviour [Recovering/Resolving]
  - Limb discomfort [Recovering/Resolving]

NARRATIVE: CASE EVENT DATE: 20250903
